FAERS Safety Report 9372239 (Version 1)
Quarter: 2013Q2

REPORT INFORMATION
  Report Type: Spontaneous
  Country: US (occurrence: US)
  Receive Date: 20130627
  Receipt Date: 20130627
  Transmission Date: 20140414
  Serious: No
  Sender: FDA-Public Use
  Company Number: US-VERTEX PHARMACEUTICALS INC-2013-007472

PATIENT
  Age: 46 Year
  Sex: Male
  Weight: 104 kg

DRUGS (8)
  1. INCIVEK [Suspect]
     Indication: HEPATITIS C
     Dosage: 750 MG, TID
     Route: 048
     Dates: start: 20130623
  2. RIBAVIRIN [Suspect]
     Indication: HEPATITIS C
     Dosage: 2 DF, BID
     Route: 048
     Dates: start: 20130623
  3. PEGASYS [Suspect]
     Indication: HEPATITIS C
     Dosage: 180 ?G, QW
     Route: 058
     Dates: start: 20130623
  4. VALIUM [Concomitant]
     Indication: ANXIETY
     Dosage: AS DIRECTED
     Route: 048
  5. PERCOCET [Concomitant]
     Indication: PAIN
     Dosage: UNK, PRN
     Route: 048
  6. IBUPROFEN [Concomitant]
     Indication: PAIN
     Dosage: UNK, PRN
     Route: 048
  7. OMEPRAZOLE [Concomitant]
     Indication: GASTROOESOPHAGEAL REFLUX DISEASE
     Dosage: UNK, PRN
     Route: 048
  8. ZANAFLEX [Concomitant]
     Indication: MUSCLE RELAXANT THERAPY
     Dosage: UNK, PRN
     Route: 048

REACTIONS (3)
  - Heart rate increased [Recovered/Resolved]
  - Chills [Not Recovered/Not Resolved]
  - Anorectal discomfort [Not Recovered/Not Resolved]
